FAERS Safety Report 5812690-7 (Version None)
Quarter: 2008Q3

REPORT INFORMATION
  Report Type: 
  Country: None (occurrence: None)
  Receive Date: 20080714
  Receipt Date: 20080714
  Transmission Date: 20090109
  Serious: Yes (Other)
  Sender: FDA-Public Use
  Company Number: None

PATIENT
  Age: 68 Year
  Sex: Male
  Weight: 108.8633 kg

DRUGS (2)
  1. LANTUS [Suspect]
     Indication: DIABETES MELLITUS
     Dosage: 50 UNITS EVENING SQ; 40 UNITS MORNING SQ
     Route: 058
     Dates: start: 20080705, end: 20080706
  2. LANTUS [Suspect]
     Indication: DIABETES MELLITUS
     Dosage: 50 UNITS EVENING SQ; 40 UNITS MORNING SQ
     Route: 058
     Dates: start: 20080705, end: 20080707

REACTIONS (3)
  - BLOOD GLUCOSE INCREASED [None]
  - DRUG INEFFECTIVE [None]
  - PHARMACEUTICAL PRODUCT COMPLAINT [None]
